FAERS Safety Report 19566737 (Version 2)
Quarter: 2021Q3

REPORT INFORMATION
  Report Type: Spontaneous
  Country: US (occurrence: US)
  Receive Date: 20210714
  Receipt Date: 20210721
  Transmission Date: 20211014
  Serious: No
  Sender: FDA-Public Use
  Company Number: US-SA-2021SA228963

PATIENT
  Age: 71 Year
  Sex: Female

DRUGS (2)
  1. SOLIQUA 100/33 [Suspect]
     Active Substance: INSULIN GLARGINE\LIXISENATIDE
     Dosage: SHE IS PRESCRIBED TO INCREASE HER DOSE BY 5 UNITS
     Route: 065
  2. SOLIQUA 100/33 [Suspect]
     Active Substance: INSULIN GLARGINE\LIXISENATIDE
     Indication: TYPE 2 DIABETES MELLITUS
     Dosage: 30 IU, Q12H (TWICE A DAY)
     Route: 065

REACTIONS (4)
  - Incorrect dose administered by device [Recovering/Resolving]
  - Inappropriate schedule of product administration [Unknown]
  - Device leakage [Recovering/Resolving]
  - Blood glucose increased [Recovering/Resolving]
